FAERS Safety Report 5005944-8 (Version None)
Quarter: 2006Q2

REPORT INFORMATION
  Report Type: 
  Country: None (occurrence: None)
  Receive Date: 20060517
  Receipt Date: 20060517
  Transmission Date: 20061013
  Serious: Yes (Other)
  Sender: FDA-Public Use
  Company Number: None

PATIENT
  Age: 36 Year
  Sex: Female

DRUGS (1)
  1. ELOXATIN [Suspect]
     Indication: COLON CANCER
     Dosage: 170 MG IV
     Route: 042
     Dates: start: 20060424, end: 20060510

REACTIONS (4)
  - CHEST DISCOMFORT [None]
  - FLUSHING [None]
  - INCREASED UPPER AIRWAY SECRETION [None]
  - INFUSION RELATED REACTION [None]
